FAERS Safety Report 16453705 (Version 6)
Quarter: 2020Q2

REPORT INFORMATION
  Report Type: Spontaneous
  Country: US (occurrence: US)
  Receive Date: 20190619
  Receipt Date: 20200427
  Transmission Date: 20200713
  Serious: Yes (Death, Hospitalization, Other)
  Sender: FDA-Public Use
  Company Number: US-PFIZER INC-2019257811

PATIENT
  Age: 77 Year
  Sex: Female
  Weight: 51 kg

DRUGS (3)
  1. XGEVA [Concomitant]
     Active Substance: DENOSUMAB
     Indication: BONE DISORDER
     Dosage: 120 MG, CYCLIC (EVERY 4 WEEKS)
     Dates: start: 20190425
  2. IBRANCE [Suspect]
     Active Substance: PALBOCICLIB
     Indication: BREAST CANCER METASTATIC
     Dosage: 100 MG, CYCLIC (DAILY FOR 21 DAYS, 7 DAYS REST)
     Route: 048
     Dates: start: 20190605
  3. FASLODEX [Concomitant]
     Active Substance: FULVESTRANT
     Dosage: 500 MG, CYCLIC (EVERY 4 WEEKS)
     Route: 030
     Dates: start: 20190328

REACTIONS (10)
  - Oxygen saturation decreased [Recovered/Resolved]
  - Dyspnoea [Recovered/Resolved]
  - Death [Fatal]
  - Heart rate increased [Recovered/Resolved]
  - Insomnia [Recovered/Resolved]
  - Mass [Recovered/Resolved]
  - Pleural effusion [Recovered/Resolved]
  - Rash [Unknown]
  - Dry skin [Unknown]
  - Diarrhoea [Unknown]

NARRATIVE: CASE EVENT DATE: 2019
